FAERS Safety Report 26210680 (Version 1)
Quarter: 2025Q4

REPORT INFORMATION
  Report Type: Spontaneous
  Country: EU (occurrence: EU)
  Receive Date: 20251230
  Receipt Date: 20251230
  Transmission Date: 20260117
  Serious: Yes (Death, Other)
  Sender: AMGEN
  Company Number: EU-AMGEN-POLSP2025255670

PATIENT

DRUGS (5)
  1. CARFILZOMIB [Suspect]
     Active Substance: CARFILZOMIB
     Indication: Plasma cell myeloma
     Dosage: 20 MILLIGRAM PER MILLILITRE, ON DAYS 1 CYCLE 1
     Route: 040
  2. CARFILZOMIB [Suspect]
     Active Substance: CARFILZOMIB
     Dosage: 56 MILLIGRAM PER MILLILITRE, ON DAYS 1, 8, 15
     Route: 040
  3. LENALIDOMIDE [Suspect]
     Active Substance: LENALIDOMIDE
     Indication: Plasma cell myeloma
     Dosage: 25 MILLIGRAM, DAYS 1-21
     Route: 048
  4. LENALIDOMIDE [Suspect]
     Active Substance: LENALIDOMIDE
     Dosage: 15 MILLIGRAM, QD
     Route: 048
  5. DEXAMETHASONE [Suspect]
     Active Substance: DEXAMETHASONE
     Indication: Plasma cell myeloma
     Dosage: 40 MILLIGRAM, QWK, DURING CYCLES 13-24
     Route: 065

REACTIONS (9)
  - COVID-19 [Fatal]
  - Pneumonia [Fatal]
  - Death [Fatal]
  - Cardiac disorder [Unknown]
  - Lower respiratory tract infection [Unknown]
  - Plasma cell myeloma [Unknown]
  - Neuropathy peripheral [Unknown]
  - Neutropenia [Unknown]
  - Minimal residual disease [Unknown]
